FAERS Safety Report 21707908 (Version 1)
Quarter: 2022Q4

REPORT INFORMATION
  Report Type: Spontaneous
  Country: SI (occurrence: SI)
  Receive Date: 20221209
  Receipt Date: 20221209
  Transmission Date: 20230112
  Serious: Yes (Hospitalization, Other)
  Sender: FDA-Public Use
  Company Number: SI-009507513-2212SVN002828

PATIENT
  Age: 53 Year
  Sex: Female

DRUGS (1)
  1. PEMBROLIZUMAB [Suspect]
     Active Substance: PEMBROLIZUMAB
     Indication: Adenocarcinoma metastatic
     Dates: start: 202103, end: 202109

REACTIONS (15)
  - Respiratory failure [Unknown]
  - Bronchiectasis [Unknown]
  - Allergic bronchopulmonary mycosis [Unknown]
  - Bronchiolitis [Unknown]
  - Obstructive airways disorder [Unknown]
  - Dyspnoea exertional [Unknown]
  - Cough [Unknown]
  - Asthma [Unknown]
  - Bronchial wall thickening [Unknown]
  - Dyspnoea [Unknown]
  - Eosinophilic bronchitis [Unknown]
  - Rhinovirus infection [Unknown]
  - Pulmonary function test decreased [Unknown]
  - Bronchitis [Unknown]
  - Bronchial secretion retention [Unknown]

NARRATIVE: CASE EVENT DATE: 20210101
